FAERS Safety Report 26195476 (Version 1)
Quarter: 2025Q4

REPORT INFORMATION
  Report Type: Spontaneous
  Country: US (occurrence: US)
  Receive Date: 20251224
  Receipt Date: 20251224
  Transmission Date: 20260117
  Serious: No
  Sender: BIOVITRUM
  Company Number: US-BIOVITRUM-2025-US-017758

PATIENT
  Age: 69 Year
  Sex: Male

DRUGS (1)
  1. VONJO [Suspect]
     Active Substance: PACRITINIB
     Indication: Myelofibrosis
     Dosage: 2 CAPSULES TWICE DAILY
     Route: 048
     Dates: start: 20251103

REACTIONS (3)
  - Pain in extremity [Unknown]
  - Product dose omission issue [Unknown]
  - Product use issue [Unknown]
